FAERS Safety Report 24581744 (Version 2)
Quarter: 2024Q4

REPORT INFORMATION
  Report Type: Spontaneous
  Country: GB (occurrence: GB)
  Receive Date: 20241105
  Receipt Date: 20241111
  Transmission Date: 20250115
  Serious: Yes (Hospitalization)
  Sender: MYLAN
  Company Number: GB-MYLANLABS-2024M1099418

PATIENT
  Sex: Male

DRUGS (2)
  1. CLOZARIL [Suspect]
     Active Substance: CLOZAPINE
     Indication: Schizophrenia
     Dosage: UNK (PATIENT STOPPED MEDICATION AROUND 07-OCT-2024/ LAST DOSE AROUND 16-OCT-2024)
     Route: 048
     Dates: start: 20190816, end: 202410
  2. CLOZARIL [Suspect]
     Active Substance: CLOZAPINE
     Dosage: UNK
     Route: 048
     Dates: start: 20241030

REACTIONS (2)
  - Mania [Unknown]
  - Psychotic disorder [Unknown]
